FAERS Safety Report 9778876 (Version 3)
Quarter: 2014Q1

REPORT INFORMATION
  Report Type: Spontaneous
  Country: JP (occurrence: JP)
  Receive Date: 20131223
  Receipt Date: 20140108
  Transmission Date: 20141002
  Serious: Yes (Hospitalization)
  Sender: FDA-Public Use
  Company Number: JP-EISAI INC-E7389-04496-SPO-JP

PATIENT
  Age: 52 Year
  Sex: Female

DRUGS (2)
  1. HALAVEN [Suspect]
     Indication: BREAST CANCER
     Dosage: 1.4 MG/M2
     Route: 041
     Dates: start: 20131111, end: 20131111
  2. HALAVEN [Suspect]
     Dosage: 1.1 MG/M2
     Route: 041
     Dates: start: 20131125

REACTIONS (2)
  - Herpes zoster [Recovered/Resolved]
  - Neutropenia [Recovered/Resolved]
